FAERS Safety Report 6902491-0 (Version None)
Quarter: 2010Q3

REPORT INFORMATION
  Report Type: 
  Country: None (occurrence: None)
  Receive Date: 20100803
  Receipt Date: 20100727
  Transmission Date: 20110219
  Serious: Yes (Death, Other)
  Sender: FDA-Public Use
  Company Number: US-AMGEN-QUU419851

PATIENT
  Sex: Male
  Weight: 42.7 kg

DRUGS (2)
  1. NPLATE [Suspect]
     Indication: IDIOPATHIC THROMBOCYTOPENIC PURPURA
     Dates: start: 20090529, end: 20090615
  2. CORTICOSTEROIDS [Concomitant]
     Dates: start: 20090529

REACTIONS (2)
  - DISEASE PROGRESSION [None]
  - DRUG INEFFECTIVE [None]
